FAERS Safety Report 22132127 (Version 1)
Quarter: 2023Q1

REPORT INFORMATION
  Report Type: Spontaneous
  Country: JP (occurrence: None)
  Receive Date: 20230323
  Receipt Date: 20230323
  Transmission Date: 20230418
  Serious: Yes (Hospitalization)
  Sender: FDA-Public Use
  Company Number: 2023A065810

PATIENT
  Age: 73 Year
  Sex: Male

DRUGS (11)
  1. DAPAGLIFLOZIN [Suspect]
     Active Substance: DAPAGLIFLOZIN
     Indication: Cardiac failure chronic
     Dosage: DOSE UNKNOWN
     Route: 048
  2. DAPAGLIFLOZIN [Suspect]
     Active Substance: DAPAGLIFLOZIN
     Indication: Cardiac failure chronic
     Dosage: DOSE UNKNOWN
     Route: 048
  3. VALSARTAN [Concomitant]
     Active Substance: VALSARTAN
  4. AZOSEMIDE [Concomitant]
     Active Substance: AZOSEMIDE
  5. TOLVAPTAN [Concomitant]
     Active Substance: TOLVAPTAN
  6. RIVAROXABAN [Concomitant]
     Active Substance: RIVAROXABAN
  7. FEBUXOSTAT [Concomitant]
     Active Substance: FEBUXOSTAT
  8. EZETIMIBE [Concomitant]
     Active Substance: EZETIMIBE
  9. NIFEDIPINE [Concomitant]
     Active Substance: NIFEDIPINE
  10. VONOPRAZAN FUMARATE [Concomitant]
     Active Substance: VONOPRAZAN FUMARATE
  11. BISOPROLOL [Concomitant]
     Active Substance: BISOPROLOL

REACTIONS (6)
  - Cardiac failure [Unknown]
  - Renal impairment [Unknown]
  - Atrial fibrillation [Unknown]
  - Ventricular hypokinesia [Unknown]
  - Dyspepsia [Unknown]
  - Oedema peripheral [Unknown]
